FAERS Safety Report 12768431 (Version 1)
Quarter: 2016Q3

REPORT INFORMATION
  Report Type: Spontaneous
  Country: US (occurrence: US)
  Receive Date: 20160920
  Receipt Date: 20160920
  Transmission Date: 20161109
  Serious: Yes (Other)
  Sender: FDA-Public Use
  Company Number: None

PATIENT
  Age: 73 Year
  Sex: Male

DRUGS (1)
  1. PRAVASTATIN 20 MG [Suspect]
     Active Substance: PRAVASTATIN
     Indication: BLOOD CHOLESTEROL INCREASED
     Route: 048
     Dates: start: 20160505, end: 20160905

REACTIONS (4)
  - Heart rate irregular [None]
  - Vision blurred [None]
  - Palpitations [None]
  - Skin odour abnormal [None]

NARRATIVE: CASE EVENT DATE: 20160826
